FAERS Safety Report 5234703-6 (Version None)
Quarter: 2007Q1

REPORT INFORMATION
  Report Type: 
  Country: None (occurrence: None)
  Receive Date: 20070209
  Receipt Date: 20070201
  Transmission Date: 20070707
  Serious: Yes (Death)
  Sender: FDA-Public Use
  Company Number: DE-ABBOTT-07P-062-0358219-00

PATIENT
  Sex: Female

DRUGS (1)
  1. ZEMPLAR [Suspect]
     Indication: DRUG USE FOR UNKNOWN INDICATION
     Route: 042

REACTIONS (1)
  - ANEURYSM RUPTURED [None]
